FAERS Safety Report 19511767 (Version 1)
Quarter: 2021Q3

REPORT INFORMATION
  Report Type: Spontaneous
  Country: US (occurrence: US)
  Receive Date: 20210709
  Receipt Date: 20210709
  Transmission Date: 20211014
  Serious: Yes (Death)
  Sender: FDA-Public Use
  Company Number: US-HIKMA PHARMACEUTICALS USA INC.-US-H14001-21-03186

PATIENT
  Sex: Male

DRUGS (2)
  1. KETAMINE [Suspect]
     Active Substance: KETAMINE
     Indication: CARDIOVASCULAR DISORDER
     Route: 042
  2. KETAMINE [Suspect]
     Active Substance: KETAMINE
     Indication: LUNG DISORDER
     Route: 030

REACTIONS (1)
  - Death [Fatal]
